FAERS Safety Report 19666103 (Version 1)
Quarter: 2021Q3

REPORT INFORMATION
  Report Type: Report from Study
  Country: None (occurrence: BR)
  Receive Date: 20210805
  Receipt Date: 20210805
  Transmission Date: 20211014
  Serious: Yes (Other)
  Sender: FDA-Public Use
  Company Number: BR-ABBVIE-21K-020-4024089-00

PATIENT
  Sex: Female
  Weight: 73 kg

DRUGS (2)
  1. RINVOQ [Suspect]
     Active Substance: UPADACITINIB
     Indication: RHEUMATOID ARTHRITIS
     Dosage: 1 TABLET A DAY
     Route: 048
     Dates: start: 20210412, end: 202106
  2. RINVOQ [Suspect]
     Active Substance: UPADACITINIB
     Dosage: 1 TABLET A DAY
     Route: 048
     Dates: start: 2021

REACTIONS (1)
  - Adenomyosis [Unknown]

NARRATIVE: CASE EVENT DATE: 2021
